FAERS Safety Report 9266485 (Version 1)
Quarter: 2013Q2

REPORT INFORMATION
  Report Type: Report from Study
  Country: CO (occurrence: CO)
  Receive Date: 20130502
  Receipt Date: 20130502
  Transmission Date: 20140414
  Serious: Yes (Hospitalization)
  Sender: FDA-Public Use
  Company Number: CO-ROCHE-1205925

PATIENT
  Age: 57 Year
  Sex: Female

DRUGS (1)
  1. ACTEMRA [Suspect]
     Indication: RHEUMATOID ARTHRITIS
     Route: 042
     Dates: start: 20120328

REACTIONS (1)
  - Thrombophlebitis [Recovered/Resolved]
